FAERS Safety Report 21951617 (Version 1)
Quarter: 2023Q1

REPORT INFORMATION
  Report Type: Report from Study
  Country: US (occurrence: None)
  Receive Date: 20230203
  Receipt Date: 20230203
  Transmission Date: 20230417
  Serious: Yes (Death)
  Sender: FDA-Public Use
  Company Number: 2023A026606

PATIENT
  Age: 32101 Day
  Sex: Male

DRUGS (9)
  1. CALQUENCE [Suspect]
     Active Substance: ACALABRUTINIB
     Indication: B-cell lymphoma
     Route: 048
  2. DOXAZOSIN [Concomitant]
     Active Substance: DOXAZOSIN MESYLATE
  3. FINASTERIDE [Concomitant]
     Active Substance: FINASTERIDE
  4. LATANOPROST [Concomitant]
     Active Substance: LATANOPROST
  5. ALPHAGAN P [Concomitant]
     Active Substance: BRIMONIDINE TARTRATE
  6. FLUOCINONIDE [Concomitant]
     Active Substance: FLUOCINONIDE
  7. METHYLPREDNISOLONE [Concomitant]
     Active Substance: METHYLPREDNISOLONE
  8. SOLODYN [Concomitant]
     Active Substance: MINOCYCLINE HYDROCHLORIDE
  9. NUBEQA [Concomitant]
     Active Substance: DAROLUTAMIDE

REACTIONS (1)
  - Death [Fatal]

NARRATIVE: CASE EVENT DATE: 20230119
